FAERS Safety Report 8228658-X (Version None)
Quarter: 2012Q1

REPORT INFORMATION
  Report Type: 
  Country: None (occurrence: None)
  Receive Date: 20120322
  Receipt Date: 20110207
  Transmission Date: 20120608
  Serious: Yes (Other)
  Sender: FDA-Public Use
  Company Number: US-BRISTOL-MYERS SQUIBB COMPANY-15510688

PATIENT
  Age: 60 Year
  Sex: Male

DRUGS (2)
  1. BENADRYL [Concomitant]
     Indication: PREMEDICATION
  2. ERBITUX [Suspect]
     Indication: HEAD AND NECK CANCER
     Dosage: RECEIVED 100CC OF INFUSION
     Route: 042
     Dates: start: 20110121

REACTIONS (4)
  - CHILLS [None]
  - CHEST PAIN [None]
  - PYREXIA [None]
  - TREMOR [None]
